FAERS Safety Report 19805935 (Version 1)
Quarter: 2021Q3

REPORT INFORMATION
  Report Type: Spontaneous
  Country: US (occurrence: US)
  Receive Date: 20210909
  Receipt Date: 20210909
  Transmission Date: 20211014
  Serious: No
  Sender: FDA-Public Use
  Company Number: US-IPSEN BIOPHARMACEUTICALS, INC.-2021-21560

PATIENT

DRUGS (3)
  1. DYSPORT [Suspect]
     Active Substance: ABOBOTULINUMTOXINA
     Indication: SKIN WRINKLING
     Dosage: 63 IU (GLABELLA AND FRONTALIS)
     Route: 065
     Dates: start: 20210804, end: 20210804
  2. DYSPORT [Suspect]
     Active Substance: ABOBOTULINUMTOXINA
     Indication: SKIN WRINKLING
  3. DYSPORT [Suspect]
     Active Substance: ABOBOTULINUMTOXINA
     Indication: OFF LABEL USE

REACTIONS (15)
  - Asthenopia [Unknown]
  - Dyspnoea [Unknown]
  - Off label use [Unknown]
  - Nasal congestion [Unknown]
  - Oropharyngeal pain [Unknown]
  - Blepharospasm [Unknown]
  - Dark circles under eyes [Unknown]
  - Headache [Unknown]
  - Anxiety [Unknown]
  - Feeling abnormal [Unknown]
  - Sinusitis [Unknown]
  - Eye pruritus [Unknown]
  - Dry eye [Unknown]
  - Vision blurred [Unknown]
  - Discomfort [Unknown]

NARRATIVE: CASE EVENT DATE: 20210804
